FAERS Safety Report 6792616-2 (Version None)
Quarter: 2010Q2

REPORT INFORMATION
  Report Type: 
  Country: None (occurrence: None)
  Receive Date: 20100624
  Receipt Date: 20080916
  Transmission Date: 20101027
  Serious: No
  Sender: FDA-Public Use
  Company Number: US-PFIZER INC-2008071714

PATIENT
  Sex: Female

DRUGS (1)
  1. DEPO-PROVERA SUSPENSION/INJ [Suspect]
     Indication: CONTRACEPTION

REACTIONS (7)
  - ARTHRITIS [None]
  - HEADACHE [None]
  - MIGRAINE [None]
  - NAUSEA [None]
  - TOOTH DISORDER [None]
  - VOMITING [None]
  - WEIGHT INCREASED [None]
